FAERS Safety Report 9921174 (Version 1)
Quarter: 2014Q1

REPORT INFORMATION
  Report Type: Spontaneous
  Country: US (occurrence: US)
  Receive Date: 20140225
  Receipt Date: 20140225
  Transmission Date: 20141002
  Serious: No
  Sender: FDA-Public Use
  Company Number: US-009507513-1402USA010856

PATIENT
  Sex: Female

DRUGS (2)
  1. EMEND [Suspect]
     Dosage: 125 MG, FIRST DOSE
     Route: 048
     Dates: start: 201402, end: 201402
  2. EMEND [Suspect]
     Dosage: 120 MG, SECOND DOSE
     Route: 048
     Dates: start: 20140220

REACTIONS (3)
  - Wrong technique in drug usage process [Unknown]
  - Inappropriate schedule of drug administration [Unknown]
  - No adverse event [Unknown]
